FAERS Safety Report 17263209 (Version 1)
Quarter: 2019Q4

REPORT INFORMATION
  Report Type: Spontaneous
  Country: US (occurrence: US)
  Receive Date: 20191218
  Receipt Date: 20191218
  Transmission Date: 20200122
  Serious: No
  Sender: FDA-Public Use
  Company Number: None

PATIENT
  Age: 81 Year
  Sex: Female
  Weight: 81.65 kg

DRUGS (11)
  1. MONTELUKAST [Concomitant]
     Active Substance: MONTELUKAST SODIUM
  2. BENADRYL [Concomitant]
     Active Substance: DIPHENHYDRAMINE HYDROCHLORIDE
  3. ALGAE-CAL PLUS [Concomitant]
  4. EXEMESTANE. [Concomitant]
     Active Substance: EXEMESTANE
  5. VITAMIN B12 [Concomitant]
     Active Substance: CYANOCOBALAMIN
  6. VITAMIN D3 [Concomitant]
     Active Substance: CHOLECALCIFEROL
  7. LUMIGAN [Suspect]
     Active Substance: BIMATOPROST
     Indication: GLAUCOMA
     Dosage: ?          QUANTITY:.1 MG/ML;OTHER FREQUENCY:DAILY-BEDTIME;?
     Route: 047
     Dates: start: 20191014, end: 20191030
  8. LEVOTHYROXINE. [Concomitant]
     Active Substance: LEVOTHYROXINE
  9. BRIMONIDINE/TIMOLOL [Concomitant]
     Active Substance: BRIMONIDINE TARTRATE\TIMOLOL MALEATE
  10. BIOTIN [Concomitant]
     Active Substance: BIOTIN
  11. CALCIUM/VIT D [Concomitant]

REACTIONS (9)
  - Visual acuity reduced [None]
  - Deposit eye [None]
  - Eye irritation [None]
  - Eye inflammation [None]
  - Eye pain [None]
  - Photopsia [None]
  - Erythema [None]
  - Headache [None]
  - Uveitis [None]

NARRATIVE: CASE EVENT DATE: 20191019
